FAERS Safety Report 8114459-X (Version None)
Quarter: 2012Q1

REPORT INFORMATION
  Report Type: 
  Country: None (occurrence: None)
  Receive Date: 20120206
  Receipt Date: 20120125
  Transmission Date: 20120608
  Serious: No
  Sender: FDA-Public Use
  Company Number: US-BIOGENIDEC-2012BI003047

PATIENT
  Age: 49 Year
  Sex: Female

DRUGS (1)
  1. AVONEX [Suspect]
     Indication: MULTIPLE SCLEROSIS
     Route: 030
     Dates: start: 20100604, end: 20120107

REACTIONS (4)
  - HEPATIC ENZYME INCREASED [None]
  - GASTRITIS [None]
  - GALLBLADDER DISORDER [None]
  - ABDOMINAL PAIN [None]
